FAERS Safety Report 16395075 (Version 1)
Quarter: 2019Q2

REPORT INFORMATION
  Report Type: Spontaneous
  Country: EG (occurrence: EG)
  Receive Date: 20190605
  Receipt Date: 20190605
  Transmission Date: 20190711
  Serious: Yes (Hospitalization)
  Sender: FDA-Public Use
  Company Number: EG-NOVOPROD-663133

PATIENT
  Age: 61 Year
  Sex: Female
  Weight: 77 kg

DRUGS (5)
  1. MIXTARD 30 HM PENFILL [Suspect]
     Active Substance: INSULIN HUMAN
     Indication: DIABETES MELLITUS
     Dosage: 20 U / 15 U
     Route: 058
     Dates: start: 20190510
  2. TORSAMOLEX [Concomitant]
     Indication: HEPATITIS C
     Dosage: 1 PER 2 DAYS
     Route: 048
  3. PEPZOL [OMEPRAZOLE] [Concomitant]
     Indication: HEPATITIS C
     Dosage: 1 PER DAY
     Route: 048
  4. SILYMARINE [Concomitant]
     Indication: HEPATITIS C
     Dosage: 1 PER 8 HOURS
     Route: 048
  5. LOLAWEST [Concomitant]
     Indication: HEPATITIS C
     Dosage: 1 SACHET EVERY DAY AT NIGHT
     Route: 048

REACTIONS (3)
  - Hyperglycaemia [Recovered/Resolved]
  - Injection site haemorrhage [Not Recovered/Not Resolved]
  - Hypokalaemia [Unknown]

NARRATIVE: CASE EVENT DATE: 20190513
